FAERS Safety Report 9631094 (Version 1)
Quarter: 2013Q4

REPORT INFORMATION
  Report Type: Spontaneous
  Country: FR (occurrence: FR)
  Receive Date: 20131018
  Receipt Date: 20131018
  Transmission Date: 20140711
  Serious: Yes (Hospitalization)
  Sender: FDA-Public Use
  Company Number: FR-PFIZER INC-2013295597

PATIENT
  Age: 29 Year
  Sex: Male

DRUGS (8)
  1. TAZOCILLINE [Suspect]
     Dosage: 4 G, 3X/DAY
     Route: 042
     Dates: start: 20130808, end: 20130816
  2. INEXIUM [Suspect]
     Indication: ULCER
     Dosage: 40 MG, 1X/DAY
     Route: 042
     Dates: start: 20130805, end: 20130821
  3. INEXIUM [Suspect]
     Dosage: UNK
     Route: 048
     Dates: start: 20130822, end: 20130831
  4. HEPARIN ^PANPHARMA^ [Concomitant]
     Dosage: 30 000 TO 40 000 IU DAILY
     Route: 042
     Dates: start: 201308, end: 20130814
  5. ORGARAN [Concomitant]
     Dosage: UNK
     Dates: start: 20130815
  6. GENTAMYCIN [Concomitant]
     Dosage: UNK
     Dates: start: 20130805, end: 20130806
  7. FLAGYL [Concomitant]
     Dosage: UNK
     Dates: start: 20130806, end: 20130806
  8. AUGMENTIN [Concomitant]
     Dosage: 1 G, 3X/DAY
     Dates: start: 20130805, end: 20130807

REACTIONS (1)
  - Cholestasis [Recovering/Resolving]
